FAERS Safety Report 4786051-6 (Version None)
Quarter: 2005Q3

REPORT INFORMATION
  Report Type: 
  Country: None (occurrence: None)
  Receive Date: 20050930
  Receipt Date: 20050920
  Transmission Date: 20060218
  Serious: Yes (Hospitalization)
  Sender: FDA-Public Use
  Company Number: 2005132242

PATIENT
  Age: 56 Year
  Sex: Male

DRUGS (7)
  1. CELECOXIB (CELECOXIB) [Suspect]
     Indication: OSTEOARTHRITIS
     Dosage: 200  MG, ORAL
     Route: 048
     Dates: start: 20011220
  2. ROFECOXIB [Suspect]
     Indication: OSTEOARTHRITIS
     Dosage: 25 MG, ORAL
     Route: 048
     Dates: start: 20020117
  3. ACETAMINOPHEN [Concomitant]
  4. PROPOXYPHENE HYDROCHLORIDE (DEXTROPROPOXYPHENE HYDROCHLORIDE) [Concomitant]
  5. PEPPERMINT OIL (PEPPERMINT) [Concomitant]
  6. PSYLLIUM (PSYLLIUM) [Concomitant]
  7. ARTHROTEC [Concomitant]

REACTIONS (13)
  - ALOPECIA [None]
  - ARTHRALGIA [None]
  - AUTOIMMUNE DISORDER [None]
  - C-REACTIVE PROTEIN INCREASED [None]
  - DYSPNOEA [None]
  - HEADACHE [None]
  - HYPERTENSION [None]
  - INFLUENZA LIKE ILLNESS [None]
  - LETHARGY [None]
  - MYALGIA [None]
  - PROTEINURIA [None]
  - PYREXIA [None]
  - RED BLOOD CELL SEDIMENTATION RATE INCREASED [None]
